FAERS Safety Report 12459655 (Version 1)
Quarter: 2016Q2

REPORT INFORMATION
  Report Type: Spontaneous
  Country: US (occurrence: None)
  Receive Date: 20160610
  Receipt Date: 20160610
  Transmission Date: 20160815
  Serious: Yes (Life-Threatening)
  Sender: FDA-Public Use
  Company Number: None

PATIENT
  Age: 53 Year
  Sex: Male
  Weight: 97.7 kg

DRUGS (3)
  1. HALOPERIDOL. [Suspect]
     Active Substance: HALOPERIDOL
     Indication: DEPRESSION
     Route: 048
     Dates: start: 20160321, end: 20160323
  2. HALOPERIDOL. [Suspect]
     Active Substance: HALOPERIDOL
     Indication: ANXIETY
     Route: 048
     Dates: start: 20160321, end: 20160323
  3. HALOPERIDOL. [Suspect]
     Active Substance: HALOPERIDOL
     Indication: PERSISTENT DEPRESSIVE DISORDER
     Route: 048
     Dates: start: 20160321, end: 20160323

REACTIONS (4)
  - Self-medication [None]
  - Swollen tongue [None]
  - Dyspnoea [None]
  - Angioedema [None]

NARRATIVE: CASE EVENT DATE: 20160323
